FAERS Safety Report 4436741-X (Version None)
Quarter: 2004Q3

REPORT INFORMATION
  Report Type: 
  Country: None (occurrence: None)
  Receive Date: 20040830
  Receipt Date: 20040709
  Transmission Date: 20050211
  Serious: Yes (Hospitalization)
  Sender: FDA-Public Use
  Company Number: 200412685FR

PATIENT
  Age: 62 Year
  Sex: Female

DRUGS (4)
  1. ARAVA [Suspect]
     Indication: RHEUMATOID ARTHRITIS
     Route: 048
     Dates: start: 20010101, end: 20040708
  2. RIFATER [Suspect]
     Indication: TUBERCULOSIS
     Dosage: DOSE: 4-0-0; DOSE UNIT: UNITS
     Route: 048
     Dates: start: 20040101, end: 20040101
  3. CORTANCYL [Concomitant]
     Indication: RHEUMATOID ARTHRITIS
     Route: 048
  4. DI-ANTALVIC [Concomitant]
     Route: 048

REACTIONS (11)
  - BIOPSY LUNG ABNORMAL [None]
  - COUGH [None]
  - DRUG TOLERANCE DECREASED [None]
  - GENERAL PHYSICAL HEALTH DETERIORATION [None]
  - HISTOLOGY ABNORMAL [None]
  - LUNG DISORDER [None]
  - LUNG NEOPLASM [None]
  - NECROSIS [None]
  - NIGHT SWEATS [None]
  - OVERDOSE [None]
  - RHEUMATOID ARTHRITIS [None]
